FAERS Safety Report 16029414 (Version 1)
Quarter: 2019Q2

REPORT INFORMATION
  Report Type: Spontaneous
  Country: US (occurrence: US)
  Receive Date: 20190303
  Receipt Date: 20190303
  Transmission Date: 20190711
  Serious: Yes (Death, Hospitalization)
  Sender: FDA-Public Use
  Company Number: None

PATIENT
  Age: 82 Year
  Sex: Male
  Weight: 72 kg

DRUGS (1)
  1. INVANZ [Suspect]
     Active Substance: ERTAPENEM SODIUM
     Indication: INFECTION
     Dosage: ?          QUANTITY:100 ML;?
     Route: 042
     Dates: start: 20170421, end: 20170428

REACTIONS (5)
  - Cardiac disorder [None]
  - Hallucination [None]
  - Muscular weakness [None]
  - Respiratory arrest [None]
  - Dyspnoea [None]

NARRATIVE: CASE EVENT DATE: 20170531
